FAERS Safety Report 6992542-X (Version None)
Quarter: 2010Q3

REPORT INFORMATION
  Report Type: 
  Country: None (occurrence: None)
  Receive Date: 20100917
  Receipt Date: 20100915
  Transmission Date: 20110219
  Serious: Yes (Death, Hospitalization)
  Sender: FDA-Public Use
  Company Number: FR-ROCHE-624789

PATIENT
  Age: 94 Year
  Sex: Male

DRUGS (2)
  1. METHOXY POLYETHYLENE GLYCOL-EPOETIN BETA [Suspect]
     Route: 058
     Dates: start: 20081001, end: 20081101
  2. EPREX [Concomitant]
     Route: 058
     Dates: start: 20080726, end: 20080901

REACTIONS (2)
  - HYPERTENSION [None]
  - SUDDEN DEATH [None]
